FAERS Safety Report 5427423-6 (Version None)
Quarter: 2007Q3

REPORT INFORMATION
  Report Type: 
  Country: None (occurrence: None)
  Receive Date: 20070824
  Receipt Date: 20070824
  Transmission Date: 20080115
  Serious: Yes (Hospitalization)
  Sender: FDA-Public Use
  Company Number: None

PATIENT
  Age: 37 Year
  Sex: Female
  Weight: 99.7913 kg

DRUGS (2)
  1. AVELOX [Suspect]
     Indication: BRONCHITIS
     Dosage: 400 MG DAILY PO
     Route: 048
     Dates: start: 20070706, end: 20070713
  2. AVELOX [Suspect]
     Indication: SINUSITIS
     Dosage: 400 MG DAILY PO
     Route: 048
     Dates: start: 20070706, end: 20070713

REACTIONS (7)
  - ANXIETY [None]
  - BALANCE DISORDER [None]
  - DIZZINESS [None]
  - DYSPNOEA [None]
  - FEELING ABNORMAL [None]
  - PANIC ATTACK [None]
  - TREMOR [None]
